FAERS Safety Report 8899316 (Version 1)
Quarter: 2012Q4

REPORT INFORMATION
  Report Type: 
  Country: US (occurrence: US)
  Receive Date: 20121108
  Receipt Date: 20121108
  Transmission Date: 20130627
  Serious: No
  Sender: FDA-Public Use
  Company Number: US-AMGEN-USASP2012029751

PATIENT
  Age: 44 Year
  Sex: Female
  Weight: 64.85 kg

DRUGS (6)
  1. ENBREL [Suspect]
     Indication: RHEUMATOID ARTHRITIS
     Dosage: 50 mg, qwk
     Route: 058
     Dates: start: 20120502
  2. PRISTIQ [Concomitant]
     Dosage: 50 mg, UNK
  3. ESTRATEST [Concomitant]
  4. MS CONTIN [Concomitant]
     Dosage: 30 mg, UNK
  5. MELOXICAM [Concomitant]
     Dosage: 7.5 mg, UNK
  6. METHOTREXATE [Concomitant]
     Dosage: 2.5 mg, UNK

REACTIONS (9)
  - Nausea [Recovered/Resolved]
  - Vomiting [Recovered/Resolved]
  - Abdominal pain lower [Not Recovered/Not Resolved]
  - Abdominal pain upper [Recovered/Resolved]
  - Diarrhoea [Recovered/Resolved]
  - Viral infection [Not Recovered/Not Resolved]
  - Pyrexia [Recovered/Resolved]
  - Injection site erythema [Recovering/Resolving]
  - Injection site induration [Recovering/Resolving]
